FAERS Safety Report 7638634-3 (Version None)
Quarter: 2011Q3

REPORT INFORMATION
  Report Type: 
  Country: None (occurrence: None)
  Receive Date: 20110727
  Receipt Date: 20110718
  Transmission Date: 20111222
  Serious: Yes (Death, Other)
  Sender: FDA-Public Use
  Company Number: FR-PFIZER INC-2011168561

PATIENT
  Age: 75 Year
  Sex: Male

DRUGS (12)
  1. NOREPINEPHRINE BITARTRATE [Suspect]
     Indication: CIRCULATORY COLLAPSE
     Dosage: 0,5 MG/H
     Route: 042
     Dates: start: 20110608, end: 20110611
  2. DOBUTAMINE HCL [Suspect]
     Indication: CIRCULATORY COLLAPSE
     Dosage: 5 GAMMA/KG/MIN
     Route: 042
     Dates: start: 20110608, end: 20110611
  3. METRONIDAZOLE [Suspect]
     Dosage: UNK
     Route: 042
     Dates: start: 20110510, end: 20110624
  4. DIPRIVAN [Suspect]
     Dosage: 1 G/ 100ML
     Route: 042
     Dates: start: 20110608, end: 20110624
  5. NOREPINEPHRINE BITARTRATE [Suspect]
     Dosage: 10 MG/H
     Route: 042
     Dates: start: 20110612, end: 20110619
  6. BRICANYL [Suspect]
     Dosage: 5MG/2ML
     Route: 055
     Dates: start: 20110608, end: 20110619
  7. EPINEPHRINE [Suspect]
     Dosage: 0,6 MG/H
     Route: 042
     Dates: start: 20110612, end: 20110620
  8. PROTAMINE [Suspect]
     Dosage: 2000 IU, UNK
     Route: 042
     Dates: start: 20110608, end: 20110608
  9. DOBUTAMINE HCL [Suspect]
     Dosage: 10 GAMMA/KG/MIN
     Route: 042
     Dates: start: 20110612, end: 20110620
  10. EPINEPHRINE [Suspect]
     Indication: CIRCULATORY COLLAPSE
     Dosage: 9 MG, UNK
     Route: 042
     Dates: start: 20110608, end: 20110611
  11. PANTOPRAZOLE [Suspect]
     Dosage: 40 MG, UNK
     Route: 042
     Dates: start: 20110608, end: 20110619
  12. NOREPINEPHRINE BITARTRATE [Suspect]
     Dosage: 0,3 MG/H
     Route: 042
     Dates: start: 20110620, end: 20110624

REACTIONS (1)
  - INTESTINAL ISCHAEMIA [None]
